FAERS Safety Report 11682510 (Version 3)
Quarter: 2015Q4

REPORT INFORMATION
  Report Type: Spontaneous
  Country: US (occurrence: US)
  Receive Date: 20151029
  Receipt Date: 20151214
  Transmission Date: 20160304
  Serious: Yes (Hospitalization, Other)
  Sender: FDA-Public Use
  Company Number: PHHY2014US183933

PATIENT
  Age: 19 Year
  Sex: Female

DRUGS (25)
  1. LIORESAL [Suspect]
     Active Substance: BACLOFEN
     Indication: MUSCLE SPASTICITY
     Dosage: 691 UG, QD, CONCENTRATION 2000 MCG/ML
     Route: 037
     Dates: end: 20140709
  2. LIORESAL [Suspect]
     Active Substance: BACLOFEN
     Dosage: 399.72 UG, QD
     Route: 037
  3. LIORESAL [Suspect]
     Active Substance: BACLOFEN
     Dosage: 659.1 UG, QD 1000 MCG/ML
     Route: 037
  4. CLONAZEPAM. [Suspect]
     Active Substance: CLONAZEPAM
     Indication: PRODUCT USED FOR UNKNOWN INDICATION
     Dosage: 2.5 MG, QD (0.75 MG TWICE DAILY AND 1 MG AT BEDTIME)
     Route: 048
  5. ROBINUL [Suspect]
     Active Substance: GLYCOPYRROLATE
     Indication: PRODUCT USED FOR UNKNOWN INDICATION
     Dosage: 1 MG, QID
     Route: 048
  6. GABLOFEN [Suspect]
     Active Substance: BACLOFEN
     Indication: PRODUCT USED FOR UNKNOWN INDICATION
     Dosage: 400 UG, QD CONCENTRATION 500 MCG/ML;
     Route: 037
     Dates: start: 20140803, end: 20140822
  7. LIORESAL [Suspect]
     Active Substance: BACLOFEN
     Dosage: 549.91 UG, QD CONCENTRATION 500 MCG/ML
     Route: 037
     Dates: start: 20140709, end: 20140803
  8. LIORESAL [Suspect]
     Active Substance: BACLOFEN
     Dosage: 30 UG, BOLUS
  9. ZANAFLEX [Suspect]
     Active Substance: TIZANIDINE HYDROCHLORIDE
     Indication: PRODUCT USED FOR UNKNOWN INDICATION
     Dosage: 4 MG, TID
     Route: 048
  10. GOLYTELY [Suspect]
     Active Substance: POLYETHYLENE GLYCOL 3350\POTASSIUM CHLORIDE\SODIUM BICARBONATE\SODIUM CHLORIDE\SODIUM SULFATE ANHYDROUS
     Indication: CONSTIPATION
     Dosage: 240 ML, EVERY 10 MINUTES AS NEEDED
     Route: 065
  11. GABLOFEN [Suspect]
     Active Substance: BACLOFEN
     Dosage: 399.7 UG, QD CONCENTRATION 1000 MCG/ML
     Route: 037
     Dates: start: 20140822
  12. LIORESAL [Suspect]
     Active Substance: BACLOFEN
     Dosage: 199.93 UG, QD 500 MCG/ML
     Route: 037
  13. CLONAZEPAM. [Suspect]
     Active Substance: CLONAZEPAM
     Dosage: 0.75 MG, AT BEDTIME
     Route: 048
     Dates: start: 20140714
  14. NAPROXEN. [Suspect]
     Active Substance: NAPROXEN
     Indication: PRODUCT USED FOR UNKNOWN INDICATION
     Dosage: 8 ML, BID PER TUBE
     Route: 065
  15. LIORESAL [Suspect]
     Active Substance: BACLOFEN
     Dosage: 499.6 UG, QD CONCENTRATION 2000 MCG/ML MINIMUM RATE
     Route: 037
     Dates: start: 20140709
  16. MONTELUKAST SODIUM. [Suspect]
     Active Substance: MONTELUKAST SODIUM
     Indication: PRODUCT USED FOR UNKNOWN INDICATION
     Dosage: 4 MG, AT 8 PM PER GT
     Route: 048
  17. TRAZODONE [Suspect]
     Active Substance: TRAZODONE HYDROCHLORIDE
     Indication: PRODUCT USED FOR UNKNOWN INDICATION
     Dosage: 100 MG,PER TUBE AT BEDTIME
     Route: 048
  18. TRAZODONE [Suspect]
     Active Substance: TRAZODONE HYDROCHLORIDE
     Dosage: 50 MG, AT BEDTIME
     Route: 048
     Dates: start: 20140714
  19. MIRALAX [Suspect]
     Active Substance: POLYETHYLENE GLYCOL 3350
     Indication: CONSTIPATION
     Dosage: AS NEEDED
     Route: 065
  20. LIORESAL [Suspect]
     Active Substance: BACLOFEN
     Dosage: INCREASED
     Route: 037
  21. MULTI VITAMIN [Suspect]
     Active Substance: VITAMINS
     Indication: PRODUCT USED FOR UNKNOWN INDICATION
     Dosage: 1 DF, QD
     Route: 048
  22. FLUOXETINE [Suspect]
     Active Substance: FLUOXETINE HYDROCHLORIDE
     Indication: PRODUCT USED FOR UNKNOWN INDICATION
     Dosage: 10 MG, QD
     Route: 048
  23. RANITIDINE [Suspect]
     Active Substance: RANITIDINE\RANITIDINE HYDROCHLORIDE
     Indication: PRODUCT USED FOR UNKNOWN INDICATION
     Dosage: 4 TSP, PER TUBE BEFORE BREAKFAST
     Route: 065
  24. VALPROIC ACID. [Suspect]
     Active Substance: VALPROIC ACID
     Indication: PRODUCT USED FOR UNKNOWN INDICATION
     Dosage: 200 MG, TID PER TUBE
     Route: 065
  25. PROMETHAZINE [Suspect]
     Active Substance: PROMETHAZINE\PROMETHAZINE HYDROCHLORIDE
     Indication: NAUSEA
     Dosage: 12.5 MG, Q6H SUPPOSITORY
     Route: 065

REACTIONS (36)
  - Haematemesis [Unknown]
  - Leukopenia [Unknown]
  - Retching [Unknown]
  - Dehydration [Unknown]
  - Hypotonia [Unknown]
  - Urinary retention [Unknown]
  - Tendon disorder [Unknown]
  - Mental status changes [Unknown]
  - Malaise [Unknown]
  - Syncope [Unknown]
  - Discomfort [Unknown]
  - Adverse drug reaction [Unknown]
  - Gastritis [Unknown]
  - Blood pressure decreased [Unknown]
  - Bradycardia [Unknown]
  - Agitation [Unknown]
  - Headache [Unknown]
  - Pneumonia aspiration [Unknown]
  - Irritability [Unknown]
  - Pain in extremity [Unknown]
  - Normochromic normocytic anaemia [Unknown]
  - Depressed level of consciousness [Unknown]
  - Metabolic acidosis [Unknown]
  - Arthralgia [Unknown]
  - Lethargy [Unknown]
  - Somnolence [Unknown]
  - Vomiting [Unknown]
  - Overdose [Unknown]
  - Urine amphetamine positive [Unknown]
  - Respiratory rate decreased [Unknown]
  - Heart rate decreased [Unknown]
  - Asthenia [Unknown]
  - Loss of consciousness [Unknown]
  - Constipation [Unknown]
  - Hypothermia [Unknown]
  - Nausea [Unknown]

NARRATIVE: CASE EVENT DATE: 20140306
